FAERS Safety Report 16317958 (Version 1)
Quarter: 2019Q2

REPORT INFORMATION
  Report Type: Spontaneous
  Country: PL (occurrence: PL)
  Receive Date: 20190516
  Receipt Date: 20190516
  Transmission Date: 20190711
  Serious: Yes (Life-Threatening, Other)
  Sender: FDA-Public Use
  Company Number: PL-ROCHE-2302707

PATIENT
  Age: 65 Year
  Sex: Male

DRUGS (7)
  1. VINCRISTINE [Suspect]
     Active Substance: VINCRISTINE
     Indication: DIFFUSE LARGE B-CELL LYMPHOMA
     Dosage: CYCLIC (8 CYCLES)?LAST DOSE ON JAN/2011
     Route: 065
     Dates: start: 201004, end: 2011
  2. OXALIPLATIN. [Suspect]
     Active Substance: OXALIPLATIN
     Indication: DIFFUSE LARGE B-CELL LYMPHOMA REFRACTORY
     Route: 065
  3. RITUXIMAB. [Suspect]
     Active Substance: RITUXIMAB
     Indication: DIFFUSE LARGE B-CELL LYMPHOMA
     Dosage: CYCLIC (8 CYCLES)?LAST DOSE ON /JAN/2011
     Route: 065
     Dates: start: 201004, end: 2011
  4. PREDNISONE. [Suspect]
     Active Substance: PREDNISONE
     Indication: DIFFUSE LARGE B-CELL LYMPHOMA
     Dosage: UNK, CYCLIC (8 CYCLES)?LAST DOSE ON /JAN/2011
     Route: 065
     Dates: start: 201004, end: 2011
  5. DOXORUBICIN HYDROCHLORIDE. [Suspect]
     Active Substance: DOXORUBICIN HYDROCHLORIDE
     Indication: DIFFUSE LARGE B-CELL LYMPHOMA
     Dosage: CYCLIC (8 CYCLES)?LAST DOSE ON /JAN/2011
     Route: 065
     Dates: start: 201004, end: 2011
  6. GEMCITABINE [Suspect]
     Active Substance: GEMCITABINE\GEMCITABINE HYDROCHLORIDE
     Indication: DIFFUSE LARGE B-CELL LYMPHOMA REFRACTORY
     Route: 065
  7. CYCLOPHOSPHAMIDE. [Suspect]
     Active Substance: CYCLOPHOSPHAMIDE
     Indication: DIFFUSE LARGE B-CELL LYMPHOMA
     Dosage: CYCLIC (8 CYCLES)?LAST DOSE ON /JAN/2011
     Route: 065
     Dates: start: 201004, end: 2011

REACTIONS (8)
  - Intentional product use issue [Unknown]
  - Leukopenia [Unknown]
  - Drug resistance [Unknown]
  - Thrombocytopenia [Recovered/Resolved]
  - Off label use [Unknown]
  - Weight decreased [Unknown]
  - General physical health deterioration [Unknown]
  - Night sweats [Unknown]
